FAERS Safety Report 17765288 (Version 3)
Quarter: 2020Q2

REPORT INFORMATION
  Report Type: Spontaneous
  Country: US (occurrence: US)
  Receive Date: 20200511
  Receipt Date: 20200603
  Transmission Date: 20200714
  Serious: No
  Sender: FDA-Public Use
  Company Number: US-PFIZER INC-2020187476

PATIENT
  Age: 49 Year
  Sex: Female

DRUGS (1)
  1. IBRANCE [Suspect]
     Active Substance: PALBOCICLIB
     Dosage: 125 MG
     Dates: start: 20200415

REACTIONS (6)
  - Initial insomnia [Unknown]
  - Product dose omission [Unknown]
  - Alopecia [Unknown]
  - Sleep disorder [Unknown]
  - Anaemia [Unknown]
  - Diarrhoea [Unknown]
